FAERS Safety Report 8613970-2 (Version None)
Quarter: 2012Q3

REPORT INFORMATION
  Report Type: 
  Country: None (occurrence: None)
  Receive Date: 20120823
  Receipt Date: 20120822
  Transmission Date: 20120928
  Serious: No
  Sender: FDA-Public Use
  Company Number: US-PFIZER INC-2012206406

PATIENT
  Age: 58 Year
  Sex: Female
  Weight: 83.9 kg

DRUGS (6)
  1. CHANTIX [Suspect]
     Indication: SMOKING CESSATION THERAPY
     Dosage: 0.5 MG, 1X/DAY
     Route: 048
     Dates: start: 20120731, end: 20120101
  2. ASPIRIN [Concomitant]
     Dosage: 81 MG, UNK
  3. ZOLOFT [Concomitant]
     Indication: DEPRESSION
     Dosage: 100 MG, UNK
  4. CHANTIX [Suspect]
     Dosage: 1 MG, 2X/DAY
     Route: 048
     Dates: start: 20120101
  5. DOCUSATE [Concomitant]
     Dosage: 200 MG, UNK
  6. VITAMIN D [Concomitant]
     Dosage: 240 MG, UNK

REACTIONS (1)
  - INSOMNIA [None]
